FAERS Safety Report 5014823-1 (Version None)
Quarter: 2006Q2

REPORT INFORMATION
  Report Type: 
  Country: None (occurrence: None)
  Receive Date: 20060419
  Receipt Date: 20050617
  Transmission Date: 20061013
  Serious: Yes (Life-Threatening, Hospitalization, Other)
  Sender: FDA-Public Use
  Company Number: 2005-02115

PATIENT
  Age: 58 Year
  Sex: Female

DRUGS (9)
  1. FERRLECIT [Suspect]
     Indication: IRON DEFICIENCY ANAEMIA
     Dosage: 250 MG/100ML NS OVER 1HR X1, INTRAVENOUS
     Route: 042
     Dates: start: 20050609, end: 20050609
  2. EPOGEN (EPOETIN ALFA), 3000 U [Concomitant]
  3. CLONIDINE [Concomitant]
  4. FELODIPINE (FELODIPINE), 10 MG [Concomitant]
  5. FUROSEMIDE [Concomitant]
  6. TUMS (CALCIUM CARBONATE), 500 MG [Concomitant]
  7. SEVELAMER (SEVELAMER), 800 MG [Concomitant]
  8. CALCITROL (CALCIUM CARBONATE, RETINOL, ERGOCALCIFEROL) 0.25 MCG [Concomitant]
  9. VITAMIN B COMPLEX (RIBOFLAVIN, NICOTINAMIDE, CALCIUM PANTOTHENATE) [Concomitant]

REACTIONS (5)
  - ABDOMINAL PAIN [None]
  - ANAPHYLACTIC REACTION [None]
  - HYPOTENSION [None]
  - NAUSEA [None]
  - VOMITING [None]
